FAERS Safety Report 17896336 (Version 2)
Quarter: 2020Q2

REPORT INFORMATION
  Report Type: Report from Study
  Country: IT (occurrence: IT)
  Receive Date: 20200615
  Receipt Date: 20200618
  Transmission Date: 20200714
  Serious: Yes (Other)
  Sender: FDA-Public Use
  Company Number: IT-MYLANLABS-2020M1045327

PATIENT
  Age: 81 Year
  Sex: Male

DRUGS (12)
  1. PLAUNAC [Concomitant]
     Active Substance: OLMESARTAN MEDOXOMIL
     Dosage: 40 MILLIGRAM, QD
  2. ELIQUIS [Concomitant]
     Active Substance: APIXABAN
     Dosage: 2 DOSAGE FORM, QD
  3. ZYLORIC [Concomitant]
     Active Substance: ALLOPURINOL
     Dosage: 1 DOSAGE FORM, QD
  4. TAPAZOLE [Concomitant]
     Active Substance: METHIMAZOLE
     Dosage: 3 DOSAGE FORM
  5. TAPAZOLE [Concomitant]
     Active Substance: METHIMAZOLE
     Dosage: 2 TABLETS / BID FOR 20 DAYS
  6. FULCROSUPRA [Concomitant]
     Active Substance: FENOFIBRATE
     Dosage: 1 DOSAGE FORM
  7. ZYLORIC [Concomitant]
     Active Substance: ALLOPURINOL
     Dosage: 1 DOSAGE FORM
  8. PLAUNAC [Concomitant]
     Active Substance: OLMESARTAN MEDOXOMIL
     Dosage: 40 MILLIGRAM
  9. ELIQUIS [Concomitant]
     Active Substance: APIXABAN
     Dosage: 2 DOSAGE FORM,
  10. AMIODARONE [Suspect]
     Active Substance: AMIODARONE
     Indication: ATRIAL FIBRILLATION
     Dosage: 100 MILLIGRAM, QD
     Route: 048
     Dates: start: 20181101, end: 20191101
  11. FULCROSUPRA [Concomitant]
     Active Substance: FENOFIBRATE
     Dosage: 1 DOSAGE FORM, QD
  12. TAPAZOLE [Concomitant]
     Active Substance: METHIMAZOLE
     Dosage: 3 DOSAGE FORM, QD

REACTIONS (3)
  - Hyperthyroidism [Not Recovered/Not Resolved]
  - Atrial fibrillation [Not Recovered/Not Resolved]
  - Drug ineffective [Not Recovered/Not Resolved]

NARRATIVE: CASE EVENT DATE: 20191101
